FAERS Safety Report 18714578 (Version 2)
Quarter: 2021Q1

REPORT INFORMATION
  Report Type: Spontaneous
  Country: US (occurrence: US)
  Receive Date: 20210107
  Receipt Date: 20210126
  Transmission Date: 20210419
  Serious: Yes (Other)
  Sender: FDA-Public Use
  Company Number: US-LUNDBECK-DKLU3024029

PATIENT
  Age: 89 Year
  Sex: Male

DRUGS (2)
  1. NORTHERA [Suspect]
     Active Substance: DROXIDOPA
     Route: 048
  2. NORTHERA [Suspect]
     Active Substance: DROXIDOPA
     Indication: ORTHOSTATIC HYPOTENSION
     Route: 048

REACTIONS (7)
  - Incorrect dose administered [Unknown]
  - Fall [Unknown]
  - Blood pressure increased [Unknown]
  - Orthostatic hypotension [Unknown]
  - Drug ineffective [Unknown]
  - Loss of consciousness [Unknown]
  - Dizziness [Unknown]
